FAERS Safety Report 6107623-2 (Version None)
Quarter: 2009Q1

REPORT INFORMATION
  Report Type: 
  Country: None (occurrence: None)
  Receive Date: 20090309
  Receipt Date: 20090225
  Transmission Date: 20090719
  Serious: Yes (Hospitalization, Other)
  Sender: FDA-Public Use
  Company Number: US-PFIZER INC-2004007513

PATIENT
  Sex: Male
  Weight: 104.31 kg

DRUGS (9)
  1. VIAGRA [Suspect]
     Indication: ERECTILE DYSFUNCTION
     Dosage: UNK
     Route: 048
  2. TOPROL-XL [Interacting]
     Indication: ILL-DEFINED DISORDER
     Dosage: DAILY
     Route: 048
     Dates: start: 20020101
  3. CARICA PAPAYA [Interacting]
     Indication: ILL-DEFINED DISORDER
     Route: 065
  4. COLCHICINE [Concomitant]
     Route: 065
  5. METFORMIN HCL [Concomitant]
     Route: 065
  6. GLIBENCLAMIDE [Concomitant]
     Route: 065
  7. ASPIRIN [Concomitant]
     Route: 065
  8. VITAMINS [Concomitant]
     Route: 065
  9. NITROGLYCERIN [Concomitant]
     Route: 065
     Dates: end: 20020101

REACTIONS (4)
  - CORONARY ARTERY BYPASS [None]
  - DRUG INTERACTION [None]
  - DYSPHONIA [None]
  - ERECTILE DYSFUNCTION [None]
